FAERS Safety Report 13820402 (Version 2)
Quarter: 2017Q3

REPORT INFORMATION
  Report Type: Spontaneous
  Country: KR (occurrence: KR)
  Receive Date: 20170801
  Receipt Date: 20170828
  Transmission Date: 20171127
  Serious: Yes (Hospitalization, Other)
  Sender: FDA-Public Use
  Company Number: KR-009507513-1703KOR008765

PATIENT
  Age: 59 Year
  Sex: Female
  Weight: 60.3 kg

DRUGS (42)
  1. EMEND (FOSAPREPITANT DIMEGLUMINE) [Suspect]
     Active Substance: FOSAPREPITANT DIMEGLUMINE
     Dosage: 150 MG, ONCE
     Route: 042
     Dates: start: 20170227, end: 20170227
  2. HERCEPTIN [Concomitant]
     Active Substance: TRASTUZUMAB
     Dosage: 363 MG, ONCE DAILY, CYCLE 5
     Route: 051
     Dates: start: 20170203, end: 20170203
  3. CISPLATIN. [Concomitant]
     Active Substance: CISPLATIN
     Dosage: 130.4 MG, ONCE DAILY, CYCLE 2
     Route: 051
     Dates: start: 20161124, end: 20161124
  4. CISPLATIN. [Concomitant]
     Active Substance: CISPLATIN
     Dosage: 128.8 MG, ONCE DAILY, CYCLE 4
     Route: 051
     Dates: start: 20170113, end: 20170113
  5. CISPLATIN. [Concomitant]
     Active Substance: CISPLATIN
     Dosage: 128.8 MG, ONCE DAILY, CYCLE 6
     Route: 051
     Dates: start: 20170227, end: 20170227
  6. DEXAMETHASONE. [Concomitant]
     Active Substance: DEXAMETHASONE
     Dosage: 12 MG, ONCE DAILY
     Route: 051
     Dates: start: 20161219, end: 20161219
  7. DEXAMETHASONE. [Concomitant]
     Active Substance: DEXAMETHASONE
     Dosage: 12 MG, ONCE DAILY
     Route: 051
     Dates: start: 20170113, end: 20170113
  8. ALOXI [Concomitant]
     Active Substance: PALONOSETRON HYDROCHLORIDE
     Dosage: 0.25 MG, ONCE DAILY
     Route: 051
     Dates: start: 20161124, end: 20161124
  9. EMEND (FOSAPREPITANT DIMEGLUMINE) [Suspect]
     Active Substance: FOSAPREPITANT DIMEGLUMINE
     Dosage: 150 MG, ONCE
     Route: 042
     Dates: start: 20161124, end: 20161124
  10. XELODA [Concomitant]
     Active Substance: CAPECITABINE
     Dosage: 1600 MG, TWICE A DAY, CYCLE 3
     Route: 048
     Dates: start: 20161219, end: 20170102
  11. HERCEPTIN [Concomitant]
     Active Substance: TRASTUZUMAB
     Dosage: 363 MG, ONCE DAILY, CYCLE 4
     Route: 051
     Dates: start: 20170113, end: 20170113
  12. CISPLATIN. [Concomitant]
     Active Substance: CISPLATIN
     Dosage: 128.8 MG, ONCE DAILY, CYCLE 5
     Route: 051
     Dates: start: 20170203, end: 20170203
  13. DEXAMETHASONE. [Concomitant]
     Active Substance: DEXAMETHASONE
     Indication: PROPHYLAXIS OF NAUSEA AND VOMITING
     Dosage: 8 MG, ONCE DAILY
     Route: 048
     Dates: start: 20161104, end: 20161106
  14. EMEND (FOSAPREPITANT DIMEGLUMINE) [Suspect]
     Active Substance: FOSAPREPITANT DIMEGLUMINE
     Indication: PROPHYLAXIS OF NAUSEA AND VOMITING
     Dosage: 150 MG, ONCE
     Route: 042
     Dates: start: 20161103, end: 20161103
  15. CISPLATIN. [Concomitant]
     Active Substance: CISPLATIN
     Indication: GASTRIC CANCER
     Dosage: 129.6 MG, ONCE DAILY, CYCLE 1
     Route: 051
     Dates: start: 20161103, end: 20161103
  16. DEXAMETHASONE. [Concomitant]
     Active Substance: DEXAMETHASONE
     Dosage: 12 MG, ONCE DAILY
     Route: 051
     Dates: start: 20170203, end: 20170203
  17. XELODA [Concomitant]
     Active Substance: CAPECITABINE
     Indication: GASTRIC CANCER
     Dosage: 1600 MG, TWICE A DAY, CYCLE 1
     Route: 048
     Dates: start: 20161102, end: 20161116
  18. DEXAMETHASONE. [Concomitant]
     Active Substance: DEXAMETHASONE
     Dosage: 8 MG, ONCE DAILY
     Route: 048
     Dates: start: 20161219, end: 20161222
  19. ALOXI [Concomitant]
     Active Substance: PALONOSETRON HYDROCHLORIDE
     Dosage: 0.25 MG, ONCE DAILY
     Route: 051
     Dates: start: 20170203, end: 20170203
  20. ALOXI [Concomitant]
     Active Substance: PALONOSETRON HYDROCHLORIDE
     Dosage: 0.25 MG, ONCE DAILY
     Route: 051
     Dates: start: 20170227, end: 20170227
  21. EMEND (FOSAPREPITANT DIMEGLUMINE) [Suspect]
     Active Substance: FOSAPREPITANT DIMEGLUMINE
     Dosage: 150 MG, ONCE
     Route: 042
     Dates: start: 20161219, end: 20161219
  22. XELODA [Concomitant]
     Active Substance: CAPECITABINE
     Dosage: 1600 MG, TWICE A DAY, CYCLE 5
     Route: 048
     Dates: start: 20170203, end: 20170217
  23. HERCEPTIN [Concomitant]
     Active Substance: TRASTUZUMAB
     Dosage: 363 MG, ONCE DAILY, CYCLE 3
     Route: 051
     Dates: start: 20161219, end: 20161219
  24. ALOXI [Concomitant]
     Active Substance: PALONOSETRON HYDROCHLORIDE
     Indication: PROPHYLAXIS OF NAUSEA AND VOMITING
     Dosage: 0.25 MG, ONCE DAILY
     Route: 051
     Dates: start: 20161103, end: 20161103
  25. EMEND (FOSAPREPITANT DIMEGLUMINE) [Suspect]
     Active Substance: FOSAPREPITANT DIMEGLUMINE
     Dosage: 150 MG, ONCE
     Route: 042
     Dates: start: 20170113, end: 20170113
  26. HERCEPTIN [Concomitant]
     Active Substance: TRASTUZUMAB
     Dosage: 363.6 MG, ONCE DAILY, CYCLE 2
     Route: 051
     Dates: start: 20161124, end: 20161124
  27. CISPLATIN. [Concomitant]
     Active Substance: CISPLATIN
     Dosage: 128.8 MG, ONCE DAILY, CYCLE 3
     Route: 051
     Dates: start: 20161219, end: 20161219
  28. DEXAMETHASONE. [Concomitant]
     Active Substance: DEXAMETHASONE
     Indication: PROPHYLAXIS OF NAUSEA AND VOMITING
     Dosage: 12 MG, ONCE DAILY
     Route: 051
     Dates: start: 20161103, end: 20161103
  29. DEXAMETHASONE. [Concomitant]
     Active Substance: DEXAMETHASONE
     Dosage: 12 MG, ONCE DAILY
     Route: 051
     Dates: start: 20170227, end: 20170227
  30. DEXAMETHASONE. [Concomitant]
     Active Substance: DEXAMETHASONE
     Dosage: 8 MG, ONCE DAILY
     Route: 048
     Dates: start: 20161123, end: 20161126
  31. DEXAMETHASONE. [Concomitant]
     Active Substance: DEXAMETHASONE
     Dosage: 8 MG, ONCE DAILY
     Route: 048
     Dates: start: 20170112, end: 20170115
  32. EMEND (FOSAPREPITANT DIMEGLUMINE) [Suspect]
     Active Substance: FOSAPREPITANT DIMEGLUMINE
     Dosage: 150 MG, ONCE
     Route: 042
     Dates: start: 20170203, end: 20170203
  33. XELODA [Concomitant]
     Active Substance: CAPECITABINE
     Dosage: 1600 MG, TWICE A DAY, CYCLE 4
     Route: 048
     Dates: start: 20170112, end: 20170126
  34. XELODA [Concomitant]
     Active Substance: CAPECITABINE
     Dosage: 1600 MG, TWICE A DAY, CYCLE 6
     Route: 048
     Dates: start: 20170227, end: 20170313
  35. HERCEPTIN [Concomitant]
     Active Substance: TRASTUZUMAB
     Dosage: 363 MG, ONCE DAILY, CYCLE 6
     Route: 051
     Dates: start: 20170227, end: 20170227
  36. DEXAMETHASONE. [Concomitant]
     Active Substance: DEXAMETHASONE
     Dosage: 12 MG, ONCE DAILY
     Route: 051
     Dates: start: 20161124, end: 20161124
  37. DEXAMETHASONE. [Concomitant]
     Active Substance: DEXAMETHASONE
     Dosage: 8 MG, ONCE DAILY
     Route: 048
     Dates: start: 20170202, end: 20170205
  38. XELODA [Concomitant]
     Active Substance: CAPECITABINE
     Dosage: 1600 MG, TWICE A DAY, CYCLE 2
     Route: 048
     Dates: start: 20161124, end: 20161207
  39. HERCEPTIN [Concomitant]
     Active Substance: TRASTUZUMAB
     Indication: GASTRIC CANCER
     Dosage: 482.8 MG, ONCE DAILY, CYCLE 1
     Route: 051
     Dates: start: 20161103, end: 20161103
  40. DEXAMETHASONE. [Concomitant]
     Active Substance: DEXAMETHASONE
     Dosage: 8 MG, ONCE DAILY
     Route: 048
     Dates: start: 20170227, end: 20170302
  41. ALOXI [Concomitant]
     Active Substance: PALONOSETRON HYDROCHLORIDE
     Dosage: 0.25 MG, ONCE DAILY
     Route: 051
     Dates: start: 20161219, end: 20161219
  42. ALOXI [Concomitant]
     Active Substance: PALONOSETRON HYDROCHLORIDE
     Dosage: 0.25 MG, ONCE DAILY
     Route: 051
     Dates: start: 20170113, end: 20170113

REACTIONS (2)
  - Pulmonary embolism [Recovered/Resolved]
  - Cough [Recovered/Resolved]

NARRATIVE: CASE EVENT DATE: 20161116
